FAERS Safety Report 19206018 (Version 2)
Quarter: 2025Q2

REPORT INFORMATION
  Report Type: Spontaneous
  Country: ES (occurrence: ES)
  Receive Date: 20210503
  Receipt Date: 20250428
  Transmission Date: 20250716
  Serious: Yes (Other)
  Sender: AUROBINDO
  Company Number: ES-JNJFOC-20210412737

PATIENT
  Age: 12 Year
  Sex: Male
  Weight: 28 kg

DRUGS (2)
  1. SILDENAFIL [Suspect]
     Active Substance: SILDENAFIL
     Indication: Product used for unknown indication
     Route: 065
  2. TRACLEER [Suspect]
     Active Substance: BOSENTAN
     Indication: Pulmonary artery atresia
     Route: 065

REACTIONS (2)
  - Oxygen saturation abnormal [Unknown]
  - General physical health deterioration [Unknown]
